FAERS Safety Report 8126286-8 (Version None)
Quarter: 2012Q1

REPORT INFORMATION
  Report Type: 
  Country: None (occurrence: None)
  Receive Date: 20120209
  Receipt Date: 20120207
  Transmission Date: 20120608
  Serious: Yes (Death, Other)
  Sender: FDA-Public Use
  Company Number: IE-ABBOTT-12P-229-0902350-00

PATIENT
  Age: 54 Year
  Sex: Female
  Weight: 127 kg

DRUGS (4)
  1. HUMIRA [Suspect]
     Indication: PSORIASIS
     Route: 058
     Dates: start: 20070419, end: 20100722
  2. ACCURETIC [Concomitant]
     Indication: HYPERTENSION
     Dosage: 20MG/12.5MG
  3. CRESTOR [Concomitant]
     Indication: HYPERLIPIDAEMIA
  4. LEVOTHYROXINE SODIUM [Concomitant]
     Indication: HYPOTHYROIDISM

REACTIONS (3)
  - LOWER RESPIRATORY TRACT INFECTION [None]
  - VAGINAL HAEMORRHAGE [None]
  - CERVIX CANCER METASTATIC [None]
